FAERS Safety Report 5795973-9 (Version None)
Quarter: 2008Q3

REPORT INFORMATION
  Report Type: 
  Country: None (occurrence: None)
  Receive Date: 20080701
  Receipt Date: 20080625
  Transmission Date: 20090109
  Serious: Yes (Other)
  Sender: FDA-Public Use
  Company Number: GB-RANBAXY-2008RR-16122

PATIENT

DRUGS (4)
  1. GABAPENTIN CAPSULE 100MG [Suspect]
     Indication: DRUG USE FOR UNKNOWN INDICATION
  2. LYRICA [Suspect]
     Indication: NEURALGIA
     Dosage: 300 MG, QD
     Route: 048
  3. LYRICA [Suspect]
     Dosage: 50 MG, BID
  4. LANSOPRAZOLE [Concomitant]
     Route: 048

REACTIONS (7)
  - DIPLOPIA [None]
  - DYSURIA [None]
  - FEELING COLD [None]
  - FEELING HOT [None]
  - FLUID RETENTION [None]
  - RETINAL DEGENERATION [None]
  - WEIGHT INCREASED [None]
